FAERS Safety Report 4441215-6 (Version None)
Quarter: 2004Q3

REPORT INFORMATION
  Report Type: 
  Country: None (occurrence: None)
  Receive Date: 20040728
  Receipt Date: 20040427
  Transmission Date: 20050211
  Serious: No
  Sender: FDA-Public Use
  Company Number: USA040466089

PATIENT
  Age: 17 Year
  Sex: Male
  Weight: 65 kg

DRUGS (2)
  1. STRATTERA [Suspect]
     Dosage: 120 MG DAY
     Dates: end: 20030801
  2. PAXIL [Concomitant]

REACTIONS (1)
  - ACCIDENTAL OVERDOSE [None]
